FAERS Safety Report 4366196-5 (Version None)
Quarter: 2004Q2

REPORT INFORMATION
  Report Type: 
  Country: None (occurrence: None)
  Receive Date: 20040527
  Receipt Date: 20040204
  Transmission Date: 20050107
  Serious: No
  Sender: FDA-Public Use
  Company Number: US-BRISTOL-MYERS SQUIBB COMPANY-12496881

PATIENT
  Age: 47 Year
  Sex: Female

DRUGS (2)
  1. DEFINITY [Suspect]
     Indication: CARDIAC STRESS TEST
     Dates: start: 20040129, end: 20040129
  2. DOBUTAMINE [Suspect]
     Indication: CARDIAC STRESS TEST
     Dates: start: 20040129, end: 20040129

REACTIONS (1)
  - PRURITUS [None]
